FAERS Safety Report 18281673 (Version 2)
Quarter: 2020Q3

REPORT INFORMATION
  Report Type: Spontaneous
  Country: DE (occurrence: DE)
  Receive Date: 20200918
  Receipt Date: 20200921
  Transmission Date: 20201103
  Serious: Yes (Other)
  Sender: FDA-Public Use
  Company Number: DE-EMCURE PHARMACEUTICALS LTD-2020-EPL-001288

PATIENT

DRUGS (5)
  1. MAGNESIUM [Concomitant]
     Active Substance: MAGNESIUM
  2. TRANEXAMIC ACID. [Suspect]
     Active Substance: TRANEXAMIC ACID
     Indication: MENORRHAGIA
     Dosage: ONE TBL.EVERY MENSTRUAL CYCLE IN THE MORNING AND AT NOON
     Dates: start: 202001, end: 20200302
  3. L?THYROXIN 100 [Concomitant]
     Active Substance: LEVOTHYROXINE SODIUM
  4. TRANEXAMIC ACID. [Suspect]
     Active Substance: TRANEXAMIC ACID
     Dosage: TWO TABLETS
     Dates: start: 20200902
  5. POTASSIUM [Concomitant]
     Active Substance: POTASSIUM

REACTIONS (8)
  - Arrhythmia [Recovered/Resolved]
  - Orthostatic intolerance [Recovered/Resolved]
  - Myopathy [Recovered/Resolved]
  - Syncope [Recovered/Resolved]
  - Muscle disorder [Recovered/Resolved]
  - Dyspnoea [Recovered/Resolved]
  - Dizziness [Recovered/Resolved]
  - Blood pressure decreased [Recovered/Resolved]
